FAERS Safety Report 15428309 (Version 1)
Quarter: 2018Q3

REPORT INFORMATION
  Report Type: Spontaneous
  Country: IN (occurrence: IN)
  Receive Date: 20180926
  Receipt Date: 20180926
  Transmission Date: 20181010
  Serious: Yes (Life-Threatening, Hospitalization, Other)
  Sender: FDA-Public Use
  Company Number: IN-ACCORD-072181

PATIENT
  Age: 66 Year
  Sex: Male
  Weight: 122 kg

DRUGS (2)
  1. FUROSEMIDE. [Suspect]
     Active Substance: FUROSEMIDE
     Indication: PRODUCT USED FOR UNKNOWN INDICATION
     Route: 042
  2. DIGOXIN. [Concomitant]
     Active Substance: DIGOXIN

REACTIONS (9)
  - Blood creatinine increased [Recovering/Resolving]
  - Blood bilirubin increased [Recovering/Resolving]
  - Delirium [Recovered/Resolved]
  - Dehydration [Recovering/Resolving]
  - Hyperthermia [Recovered/Resolved]
  - Weight decreased [Recovering/Resolving]
  - Ammonia increased [Recovering/Resolving]
  - Blood creatine phosphokinase increased [Recovering/Resolving]
  - Blood lactate dehydrogenase increased [Recovering/Resolving]
